FAERS Safety Report 20737950 (Version 2)
Quarter: 2022Q3

REPORT INFORMATION
  Report Type: Spontaneous
  Country: US (occurrence: US)
  Receive Date: 20220422
  Receipt Date: 20220915
  Transmission Date: 20221027
  Serious: Yes (Other)
  Sender: FDA-Public Use
  Company Number: US-CELGENE-USA-20220203949

PATIENT
  Age: 65 Year
  Sex: Female

DRUGS (3)
  1. REVLIMID [Suspect]
     Active Substance: LENALIDOMIDE
     Indication: Plasma cell myeloma
     Dosage: 25 MILLIGRAM
     Route: 048
     Dates: start: 202103
  2. REVLIMID [Suspect]
     Active Substance: LENALIDOMIDE
     Dosage: 5 MILLIGRAM
     Route: 048
     Dates: start: 202201
  3. REVLIMID [Suspect]
     Active Substance: LENALIDOMIDE
     Dosage: 10 MILLIGRAM
     Route: 048
     Dates: start: 202202

REACTIONS (8)
  - Abdominal discomfort [Unknown]
  - Neuropathy peripheral [Unknown]
  - Skin discolouration [Unknown]
  - Swelling [Unknown]
  - Nausea [Unknown]
  - Hot flush [Unknown]
  - Nasal congestion [Unknown]
  - Dry skin [Unknown]

NARRATIVE: CASE EVENT DATE: 20220107
